FAERS Safety Report 22725631 (Version 7)
Quarter: 2024Q1

REPORT INFORMATION
  Report Type: Spontaneous
  Country: IN (occurrence: IN)
  Receive Date: 20230719
  Receipt Date: 20240131
  Transmission Date: 20240410
  Serious: Yes (Hospitalization, Other)
  Sender: FDA-Public Use
  Company Number: IN-PFIZER INC-PV202300121961

PATIENT
  Age: 67 Year
  Sex: Female
  Weight: 86 kg

DRUGS (7)
  1. PALBOCICLIB [Suspect]
     Active Substance: PALBOCICLIB
     Indication: Breast cancer metastatic
     Dosage: ONCE/DAY FOR 21 DAYS
     Route: 048
     Dates: start: 20230612, end: 20230702
  2. PALBOCICLIB [Suspect]
     Active Substance: PALBOCICLIB
     Dosage: 21 DAYS CYCLE ONCE/DAY
     Dates: start: 20230725, end: 20230814
  3. PALBOCICLIB [Suspect]
     Active Substance: PALBOCICLIB
     Dosage: 21 DAYS CYCLE ONCE/DAY
     Dates: start: 20230822, end: 20230911
  4. PALBOCICLIB [Suspect]
     Active Substance: PALBOCICLIB
     Dosage: ONCE DAILY FOR 21 DAYS AND THEN 7 DAYS OFF
  5. LETROZOLE [Concomitant]
     Active Substance: LETROZOLE
     Dosage: UNK, 1X/DAY
     Dates: start: 202303
  6. ESENTRA [DENOSUMAB] [Concomitant]
     Dosage: UNK, MONTHLY
     Dates: start: 20230613
  7. CALCIUM CARBONATE\CHOLECALCIFEROL [Concomitant]
     Active Substance: CALCIUM CARBONATE\CHOLECALCIFEROL
     Dosage: UNK

REACTIONS (9)
  - Full blood count decreased [Not Recovered/Not Resolved]
  - Haemoglobin decreased [Unknown]
  - White blood cell count decreased [Recovered/Resolved]
  - Platelet count decreased [Recovered/Resolved]
  - Pulmonary oedema [Unknown]
  - Pyrexia [Unknown]
  - Wheezing [Unknown]
  - Oxygen saturation decreased [Unknown]
  - Dyspnoea [Recovering/Resolving]

NARRATIVE: CASE EVENT DATE: 20230701
